FAERS Safety Report 7070714-6 (Version None)
Quarter: 2010Q4

REPORT INFORMATION
  Report Type: 
  Country: None (occurrence: None)
  Receive Date: 20101029
  Receipt Date: 20101019
  Transmission Date: 20110411
  Serious: Yes (Death, Other)
  Sender: FDA-Public Use
  Company Number: JP-JNJFOC-20101007216

PATIENT
  Age: 91 Year
  Sex: Female

DRUGS (6)
  1. CRAVIT [Suspect]
     Indication: URINARY TRACT INFECTION
     Route: 065
  2. CRAVIT [Suspect]
     Route: 065
  3. CRAVIT [Suspect]
     Route: 065
  4. CEFMETAZOLE SODIUM [Suspect]
     Indication: URINARY TRACT INFECTION
     Route: 065
  5. CEFMETAZOLE SODIUM [Suspect]
     Route: 065
  6. BUFERIN [Concomitant]
     Route: 065

REACTIONS (5)
  - CHOLECYSTITIS [None]
  - HAEMORRHAGIC DIATHESIS [None]
  - INTERNATIONAL NORMALISED RATIO INCREASED [None]
  - PROTHROMBIN LEVEL DECREASED [None]
  - SEPTIC SHOCK [None]
